FAERS Safety Report 10533216 (Version 2)
Quarter: 2014Q4

REPORT INFORMATION
  Report Type: Spontaneous
  Country: CA (occurrence: None)
  Receive Date: 20141020
  Receipt Date: 20141229
  Transmission Date: 20150529
  Serious: Yes (Congenital Anomaly, Other)
  Sender: FDA-Public Use
  Company Number: CA14-738

PATIENT
  Age: 32 Year
  Sex: Female

DRUGS (3)
  1. DICLECTIN [Suspect]
     Active Substance: DOXYLAMINE\PYRIDOXINE
     Indication: VOMITING
     Dosage: 4 TABLETS
  2. DICLECTIN [Suspect]
     Active Substance: DOXYLAMINE\PYRIDOXINE
     Indication: NAUSEA
     Dosage: 4 TABLETS
  3. DICLECTIN [Suspect]
     Active Substance: DOXYLAMINE\PYRIDOXINE
     Dosage: 4 TABLETS

REACTIONS (2)
  - Maternal exposure during pregnancy [None]
  - Heparin-induced thrombocytopenia [None]
